FAERS Safety Report 7138260-9 (Version None)
Quarter: 2010Q4

REPORT INFORMATION
  Report Type: 
  Country: None (occurrence: None)
  Receive Date: 20101206
  Receipt Date: 20101126
  Transmission Date: 20110411
  Serious: Yes (Hospitalization)
  Sender: FDA-Public Use
  Company Number: CA-ROCHE-735147

PATIENT
  Sex: Male

DRUGS (8)
  1. BEVACIZUMAB [Suspect]
     Indication: GLIOBLASTOMA
     Route: 042
     Dates: start: 20101008
  2. OMEPRAZOLE [Concomitant]
     Dosage: DRUG: MYLAN OMEPRAZOLE
  3. CLOBAZAM [Concomitant]
     Dosage: DRUG: TEVA CLOBAZAM
  4. DEXAMETHASONE [Concomitant]
  5. REACTINE [Concomitant]
  6. LASIX [Concomitant]
  7. ALTACE [Concomitant]
  8. AMLODIPINE [Concomitant]

REACTIONS (6)
  - ASTHENIA [None]
  - BLOOD GLUCOSE INCREASED [None]
  - DECUBITUS ULCER [None]
  - DYSURIA [None]
  - EPISTAXIS [None]
  - INFECTION [None]
